FAERS Safety Report 20534052 (Version 5)
Quarter: 2022Q3

REPORT INFORMATION
  Report Type: Spontaneous
  Country: BE (occurrence: BE)
  Receive Date: 20220301
  Receipt Date: 20220923
  Transmission Date: 20221027
  Serious: Yes (Hospitalization)
  Sender: FDA-Public Use
  Company Number: BE-Accord-254196

PATIENT
  Age: 63 Year
  Sex: Male
  Weight: 79 kg

DRUGS (41)
  1. EPCORITAMAB [Suspect]
     Active Substance: EPCORITAMAB
     Indication: Product used for unknown indication
     Dosage: FULL DOSE, SINGLE, WEEKLY
     Route: 058
     Dates: start: 20210819, end: 20211104
  2. EPCORITAMAB [Suspect]
     Active Substance: EPCORITAMAB
     Dosage: PRIMING DOSE, SINGLE
     Route: 058
     Dates: start: 20210804, end: 20210804
  3. EPCORITAMAB [Suspect]
     Active Substance: EPCORITAMAB
     Dosage: INTERMEDIATE DOSE, SINGLE
     Route: 058
     Dates: start: 20210811, end: 20210811
  4. CYTARABINE [Suspect]
     Active Substance: CYTARABINE
     Indication: Product used for unknown indication
     Route: 042
     Dates: start: 20210804, end: 20211015
  5. CARBOPLATIN [Suspect]
     Active Substance: CARBOPLATIN
     Indication: Diffuse large B-cell lymphoma stage III
     Route: 042
     Dates: start: 20210914, end: 20210914
  6. CARBOPLATIN [Suspect]
     Active Substance: CARBOPLATIN
     Dosage: 1Q3W
     Route: 042
     Dates: start: 20211014, end: 20211014
  7. CARBOPLATIN [Suspect]
     Active Substance: CARBOPLATIN
     Route: 065
     Dates: start: 20210804, end: 20210804
  8. RITUXIMAB [Suspect]
     Active Substance: RITUXIMAB
     Indication: Diffuse large B-cell lymphoma stage III
     Dosage: CONCENTRATE FOR SOLUTION FOR INFUSION
     Route: 042
     Dates: start: 20210804, end: 20211014
  9. DEXAMETHASONE [Suspect]
     Active Substance: DEXAMETHASONE
     Indication: Product used for unknown indication
     Dosage: FOR 4 DAYS, 21 DAY CYCLE,
     Route: 042
     Dates: start: 20210804, end: 20211017
  10. LISINOPRIL [Concomitant]
     Active Substance: LISINOPRIL
     Dates: start: 20210917
  11. CHOLECALCIFEROL [Concomitant]
     Active Substance: CHOLECALCIFEROL
     Dates: start: 20210718
  12. ASPIRIN [Concomitant]
     Active Substance: ASPIRIN
     Dates: start: 20210827
  13. LASIX [Concomitant]
     Active Substance: FUROSEMIDE
     Dates: start: 20211016, end: 20211029
  14. TRAMADOL HYDROCHLORIDE [Concomitant]
     Active Substance: TRAMADOL HYDROCHLORIDE
     Dates: start: 20210718
  15. ACYCLOVIR [Concomitant]
     Active Substance: ACYCLOVIR
     Dates: start: 20210721
  16. MEDROL [Concomitant]
     Active Substance: METHYLPREDNISOLONE
     Dates: start: 20211018, end: 20211021
  17. ESOMEPRAZOLE [Concomitant]
     Active Substance: ESOMEPRAZOLE
     Dates: start: 20210718
  18. FEBUXOSTAT [Concomitant]
     Active Substance: FEBUXOSTAT
  19. ACETAMINOPHEN [Concomitant]
     Active Substance: ACETAMINOPHEN
     Dates: start: 20211024, end: 20211025
  20. BISOPROLOL [Concomitant]
     Active Substance: BISOPROLOL
     Dates: start: 20210827
  21. ALLOPURINOL [Concomitant]
     Active Substance: ALLOPURINOL
     Dates: start: 20211017
  22. XALATAN [Concomitant]
     Active Substance: LATANOPROST
     Dosage: 0.005 PERCENT
     Dates: start: 20210718
  23. MOVICOL [Concomitant]
     Active Substance: POLYETHYLENE GLYCOL 3350\POTASSIUM CHLORIDE\SODIUM BICARBONATE\SODIUM CHLORIDE
     Dates: start: 20210810
  24. ARANESP [Concomitant]
     Active Substance: DARBEPOETIN ALFA
     Dates: start: 20211013
  25. BACTRIM [Concomitant]
     Active Substance: SULFAMETHOXAZOLE\TRIMETHOPRIM
     Dates: start: 20210718
  26. FOLIC ACID [Concomitant]
     Active Substance: FOLIC ACID
     Dates: start: 20211015
  27. LIPITOR [Concomitant]
     Active Substance: ATORVASTATIN CALCIUM
     Dates: start: 20210909
  28. FLUCONAZOLE [Concomitant]
     Active Substance: FLUCONAZOLE
     Dates: start: 20210804
  29. PIPERACILLIN SODIUM\TAZOBACTAM SODIUM [Concomitant]
     Active Substance: PIPERACILLIN SODIUM\TAZOBACTAM SODIUM
     Dates: start: 20211025, end: 20211028
  30. ALIZAPRIDE HYDROCHLORIDE [Concomitant]
     Active Substance: ALIZAPRIDE HYDROCHLORIDE
     Dates: start: 20211028, end: 20211028
  31. ZYRTEC (BELGIUM) [Concomitant]
     Route: 048
     Dates: start: 20211104, end: 20211104
  32. OMEPRAZOLE [Concomitant]
     Active Substance: OMEPRAZOLE
     Dates: start: 20210719
  33. MAGNESIUM [Concomitant]
     Active Substance: MAGNESIUM
     Dates: start: 20211002, end: 20211018
  34. CIPROFLOXACIN [Concomitant]
     Active Substance: CIPROFLOXACIN
     Dates: start: 20211026, end: 20211101
  35. BUMETANIDE [Concomitant]
     Active Substance: BUMETANIDE
     Dates: start: 20211002
  36. HYALURONATE SODIUM\TREHALOSE [Concomitant]
     Active Substance: HYALURONATE SODIUM\TREHALOSE
     Dates: start: 20210804
  37. DEXAMETHASONE SODIUM PHOSPHATE [Concomitant]
     Active Substance: DEXAMETHASONE SODIUM PHOSPHATE
     Dates: start: 20210804
  38. ONDANSETRON [Concomitant]
     Active Substance: ONDANSETRON
     Dates: start: 20210804
  39. ENOXAPARIN SODIUM [Concomitant]
     Active Substance: ENOXAPARIN SODIUM
     Dates: start: 20210930
  40. AMOXICILLIN\CLAVULANATE POTASSIUM [Concomitant]
     Active Substance: AMOXICILLIN\CLAVULANATE POTASSIUM
     Dates: start: 20211021, end: 20211024
  41. FILGRASTIM [Concomitant]
     Active Substance: FILGRASTIM
     Dates: start: 20211018, end: 20211027

REACTIONS (3)
  - Blood creatinine increased [Recovered/Resolved]
  - Off label use [Unknown]
  - Acute kidney injury [Recovered/Resolved]

NARRATIVE: CASE EVENT DATE: 20211112
